FAERS Safety Report 6027475-9 (Version None)
Quarter: 2009Q1

REPORT INFORMATION
  Report Type: 
  Country: None (occurrence: None)
  Receive Date: 20090105
  Receipt Date: 20081224
  Transmission Date: 20090719
  Serious: Yes (Hospitalization)
  Sender: FDA-Public Use
  Company Number: JP-PFIZER INC-2008086633

PATIENT
  Sex: Female
  Weight: 41.8 kg

DRUGS (16)
  1. GABAPEN [Suspect]
     Dosage: 200 MG, 3X/DAY
     Route: 048
     Dates: start: 20081008, end: 20081011
  2. MORPHINE [Concomitant]
     Route: 042
  3. FENTANYL-100 [Concomitant]
  4. ALL OTHER THERAPEUTIC PRODUCTS [Concomitant]
  5. RINDERON [Concomitant]
     Route: 048
  6. TRAVELMIN [Concomitant]
     Route: 048
  7. DEPAS [Concomitant]
     Route: 048
  8. LASIX [Concomitant]
     Route: 048
  9. ALUMINIUM HYDROXIDE W/ MAGNESIUM HYDROXIDE [Concomitant]
     Route: 048
  10. VOLTAREN - SLOW RELEASE ^CIBA-GEIGY^ [Concomitant]
     Route: 048
  11. CYTOTEC [Concomitant]
     Route: 048
  12. MORPHINE HYDROCHLORIDE [Concomitant]
     Route: 042
  13. ANPEC [Concomitant]
  14. MULTAMIN [Concomitant]
     Route: 042
  15. ELEMENMIC [Concomitant]
     Route: 042
  16. SANDOSTATIN [Concomitant]

REACTIONS (3)
  - BLOOD CREATININE INCREASED [None]
  - RENAL FAILURE ACUTE [None]
  - URINE OUTPUT DECREASED [None]
